FAERS Safety Report 8329375-8 (Version None)
Quarter: 2012Q2

REPORT INFORMATION
  Report Type: 
  Country: None (occurrence: None)
  Receive Date: 20120502
  Receipt Date: 20120426
  Transmission Date: 20120825
  Serious: Yes (Other)
  Sender: FDA-Public Use
  Company Number: JP-B.I. PHARMACEUTICALS,INC./RIDGEFIELD-2012-BP-09558NB

PATIENT

DRUGS (1)
  1. PRADAXA [Suspect]
     Route: 048
     Dates: start: 20120101

REACTIONS (1)
  - INTERSTITIAL LUNG DISEASE [None]
